FAERS Safety Report 11075675 (Version 17)
Quarter: 2018Q4

REPORT INFORMATION
  Report Type: Report from Study
  Country: CA (occurrence: CA)
  Receive Date: 20150429
  Receipt Date: 20181211
  Transmission Date: 20190204
  Serious: Yes (Other)
  Sender: FDA-Public Use
  Company Number: PHHY2011CA22905

PATIENT
  Age: 48 Year
  Sex: Male

DRUGS (7)
  1. RAMIPRIL. [Concomitant]
     Active Substance: RAMIPRIL
     Indication: PRODUCT USED FOR UNKNOWN INDICATION
     Dosage: UNK
     Route: 048
  2. SANDOSTATIN LAR DEPOT [Suspect]
     Active Substance: OCTREOTIDE ACETATE
     Indication: NEUROENDOCRINE TUMOUR
     Dosage: 20 MG, QMO (EVERY 4 WEEKS)
     Route: 030
     Dates: start: 20110414
  3. TYLENOL [Concomitant]
     Active Substance: ACETAMINOPHEN
     Indication: PRODUCT USED FOR UNKNOWN INDICATION
     Dosage: 3 OT, PRN
     Route: 048
  4. METOPROLOL MYLAN [Concomitant]
     Active Substance: METOPROLOL
     Indication: PRODUCT USED FOR UNKNOWN INDICATION
     Dosage: UNK
     Route: 048
  5. BABY ASPIRIN [Concomitant]
     Active Substance: ASPIRIN
     Indication: PRODUCT USED FOR UNKNOWN INDICATION
     Dosage: 81 MG, UNK
     Route: 048
  6. SANDOSTATIN LAR DEPOT [Suspect]
     Active Substance: OCTREOTIDE ACETATE
     Indication: ACROMEGALY
     Dosage: 20 MG, QMO (EVERY 4 WEEKS)
     Route: 030
     Dates: start: 20110316
  7. GABAPENTIN. [Concomitant]
     Active Substance: GABAPENTIN
     Indication: PRODUCT USED FOR UNKNOWN INDICATION
     Dosage: UNK
     Route: 048

REACTIONS (38)
  - Lower respiratory tract infection [Recovered/Resolved]
  - Anorectal discomfort [Unknown]
  - Proctalgia [Unknown]
  - Back pain [Unknown]
  - Musculoskeletal stiffness [Unknown]
  - Peripheral coldness [Unknown]
  - Injury [Unknown]
  - Poor peripheral circulation [Unknown]
  - Blood pressure systolic increased [Unknown]
  - Chills [Unknown]
  - Abdominal distension [Recovered/Resolved]
  - Constipation [Unknown]
  - Fall [Unknown]
  - Visual impairment [Recovered/Resolved]
  - Blood pressure diastolic increased [Unknown]
  - Fatigue [Unknown]
  - Cyanosis [Unknown]
  - Dysstasia [Unknown]
  - Mental disorder [Unknown]
  - Mobility decreased [Unknown]
  - Urinary incontinence [Unknown]
  - Heart rate increased [Unknown]
  - Productive cough [Unknown]
  - Haematochezia [Unknown]
  - Anxiety [Unknown]
  - Injection site pain [Unknown]
  - Dyspepsia [Unknown]
  - Diarrhoea [Unknown]
  - Blood pressure increased [Unknown]
  - Foot fracture [Unknown]
  - Gait disturbance [Unknown]
  - Amnesia [Unknown]
  - Body temperature decreased [Unknown]
  - Intervertebral disc protrusion [Unknown]
  - Pain in extremity [Unknown]
  - Anal incontinence [Unknown]
  - Respiratory rate increased [Unknown]
  - Headache [Recovered/Resolved]

NARRATIVE: CASE EVENT DATE: 20110317
